FAERS Safety Report 5297686-9 (Version None)
Quarter: 2007Q1

REPORT INFORMATION
  Report Type: 
  Country: None (occurrence: None)
  Receive Date: 20070201
  Receipt Date: 20061025
  Transmission Date: 20070707
  Serious: No
  Sender: FDA-Public Use
  Company Number: 2006PV023912

PATIENT
  Age: 64 Year
  Sex: Male
  Weight: 124.2856 kg

DRUGS (4)
  1. BYETTA [Suspect]
     Indication: DIABETES MELLITUS NON-INSULIN-DEPENDENT
     Dosage: 5 MCG;BID;SC
     Route: 058
  2. GLUCOVANCE [Concomitant]
  3. ACTOS [Concomitant]
  4. HUMALOG MIX 75/25 [Concomitant]

REACTIONS (2)
  - HYPOAESTHESIA [None]
  - WEIGHT DECREASED [None]
